FAERS Safety Report 11833940 (Version 1)
Quarter: 2015Q4

REPORT INFORMATION
  Report Type: Report from Study
  Country: IT (occurrence: IT)
  Receive Date: 20151214
  Receipt Date: 20151214
  Transmission Date: 20160305
  Serious: Yes (Death)
  Sender: FDA-Public Use
  Company Number: IT-ABBVIE-15P-083-1519039-00

PATIENT
  Sex: Male
  Weight: 57 kg

DRUGS (1)
  1. DUODOPA [Suspect]
     Active Substance: CARBIDOPA\LEVODOPA
     Indication: PARKINSON^S DISEASE
     Dosage: MD: 2.5+ 3, CR: 2.5, ED: 1
     Route: 050
     Dates: start: 20150511, end: 20151210

REACTIONS (5)
  - Infected skin ulcer [Fatal]
  - Infection [Fatal]
  - Decubitus ulcer [Fatal]
  - Condition aggravated [Fatal]
  - General physical health deterioration [Fatal]

NARRATIVE: CASE EVENT DATE: 2015
